FAERS Safety Report 7113275-5 (Version None)
Quarter: 2010Q4

REPORT INFORMATION
  Report Type: 
  Country: None (occurrence: None)
  Receive Date: 20101119
  Receipt Date: 20100518
  Transmission Date: 20110411
  Serious: No
  Sender: FDA-Public Use
  Company Number: A0862312A

PATIENT
  Sex: Female

DRUGS (1)
  1. BUPROPION [Suspect]
     Indication: DEPRESSION
     Dosage: 450MG PER DAY
     Route: 048

REACTIONS (3)
  - ANXIETY [None]
  - DISTURBANCE IN ATTENTION [None]
  - THERAPEUTIC RESPONSE DECREASED [None]
